FAERS Safety Report 5571821-7 (Version None)
Quarter: 2007Q4

REPORT INFORMATION
  Report Type: 
  Country: None (occurrence: None)
  Receive Date: 20071221
  Receipt Date: 20071218
  Transmission Date: 20080405
  Serious: Yes (Other)
  Sender: FDA-Public Use
  Company Number: B0500634A

PATIENT
  Age: 63 Year
  Sex: Male

DRUGS (2)
  1. FORTUM [Suspect]
     Indication: PYELONEPHRITIS
     Dosage: 1G TWICE PER DAY
     Route: 042
  2. CIPROFLOXACIN [Concomitant]
     Indication: PYELONEPHRITIS
     Dosage: 100ML TWICE PER DAY
     Route: 065

REACTIONS (1)
  - MANIA [None]
